FAERS Safety Report 25540065 (Version 1)
Quarter: 2025Q3

REPORT INFORMATION
  Report Type: Spontaneous
  Country: CA (occurrence: CA)
  Receive Date: 20250710
  Receipt Date: 20250710
  Transmission Date: 20251021
  Serious: Yes (Life-Threatening, Other)
  Sender: FRESENIUS KABI
  Company Number: CA-FreseniusKabi-FK202509381

PATIENT
  Age: 88 Year
  Sex: Male

DRUGS (1)
  1. HYDROMORPHONE [Suspect]
     Active Substance: HYDROMORPHONE
     Indication: Product used for unknown indication

REACTIONS (4)
  - Hypopnoea [Recovered/Resolved]
  - Hypotension [Recovered/Resolved]
  - Irregular breathing [Recovered/Resolved]
  - Unresponsive to stimuli [Recovered/Resolved]
